FAERS Safety Report 14184304 (Version 1)
Quarter: 2017Q4

REPORT INFORMATION
  Report Type: Spontaneous
  Country: US (occurrence: US)
  Receive Date: 20171113
  Receipt Date: 20171113
  Transmission Date: 20180321
  Serious: No
  Sender: FDA-Public Use
  Company Number: US-BAYER-2017-217736

PATIENT
  Age: 87 Year
  Sex: Male
  Weight: 66 kg

DRUGS (2)
  1. FIBER [Concomitant]
     Active Substance: PSYLLIUM HUSK
     Dosage: UNK
  2. MIRALAX [Suspect]
     Active Substance: POLYETHYLENE GLYCOL 3350
     Indication: GASTROINTESTINAL DISORDER
     Dosage: 17 G, UNK
     Route: 048
     Dates: start: 20171029, end: 20171109

REACTIONS (6)
  - Gastrointestinal motility disorder [Unknown]
  - Abnormal faeces [Unknown]
  - Abnormal faeces [Unknown]
  - Drug ineffective [Unknown]
  - Product use issue [Unknown]
  - Faeces hard [Unknown]

NARRATIVE: CASE EVENT DATE: 20171029
